FAERS Safety Report 13512718 (Version 2)
Quarter: 2017Q2

REPORT INFORMATION
  Report Type: Report from Study
  Country: BR (occurrence: BR)
  Receive Date: 20170504
  Receipt Date: 20170519
  Transmission Date: 20170830
  Serious: Yes (Hospitalization)
  Sender: FDA-Public Use
  Company Number: BR-BIOGEN-2017BI00395890

PATIENT
  Age: 52 Year
  Sex: Female

DRUGS (1)
  1. TYSABRI [Suspect]
     Active Substance: NATALIZUMAB
     Indication: MULTIPLE SCLEROSIS
     Route: 042
     Dates: start: 2016

REACTIONS (4)
  - Swelling [Unknown]
  - Fall [Recovered/Resolved]
  - Head injury [Unknown]
  - Food poisoning [Recovered/Resolved]

NARRATIVE: CASE EVENT DATE: 201608
